FAERS Safety Report 17465347 (Version 2)
Quarter: 2020Q2

REPORT INFORMATION
  Report Type: Spontaneous
  Country: FR (occurrence: FR)
  Receive Date: 20200227
  Receipt Date: 20200501
  Transmission Date: 20200713
  Serious: Yes (Hospitalization)
  Sender: FDA-Public Use
  Company Number: FR-TEVA-2020-FR-1191858

PATIENT
  Age: 57 Year
  Sex: Female
  Weight: 69 kg

DRUGS (9)
  1. ATORVASTATINE [Concomitant]
     Active Substance: ATORVASTATIN
     Indication: CARDIOVASCULAR EVENT PROPHYLAXIS
     Dosage: 80 MILLIGRAM
     Route: 048
     Dates: start: 20200110, end: 20200120
  2. LANSOPRAZOLE. [Concomitant]
     Active Substance: LANSOPRAZOLE
     Indication: PROPHYLAXIS AGAINST GASTROINTESTINAL ULCER
     Dosage: 15 MILLIGRAM
     Route: 048
     Dates: start: 20200120
  3. FUROSEMIDE. [Concomitant]
     Active Substance: FUROSEMIDE
     Indication: MYOCARDIAL INFARCTION
     Dosage: 40 MILLIGRAM
     Route: 048
     Dates: start: 20200110, end: 20200120
  4. TRAMADOL BASE [Suspect]
     Active Substance: TRAMADOL
     Indication: GAIT DISTURBANCE
     Dosage: 50 MG
     Route: 048
  5. KARDEGIC [Concomitant]
     Active Substance: ASPIRIN DL-LYSINE
     Indication: CARDIOVASCULAR EVENT PROPHYLAXIS
     Dosage: 1 DOSAGE FORMS
     Route: 048
     Dates: start: 20200110, end: 20200202
  6. BRILIQUE 90 MG, COMPRIME PELLICULE [Concomitant]
     Active Substance: TICAGRELOR
     Indication: CARDIOVASCULAR EVENT PROPHYLAXIS
     Dosage: 2 DOSAGE FORMS
     Route: 048
     Dates: start: 20200110, end: 20200120
  7. ALPRAZOLAM. [Suspect]
     Active Substance: ALPRAZOLAM
     Indication: ANXIETY
     Dosage: 0.25 MG
     Route: 048
     Dates: end: 20200120
  8. RAMIPRIL. [Suspect]
     Active Substance: RAMIPRIL
     Indication: MYOCARDIAL INFARCTION
     Dosage: 5 MG
     Route: 048
     Dates: start: 20200110, end: 20200120
  9. VANCOMYCINE [Suspect]
     Active Substance: VANCOMYCIN
     Indication: CLOSTRIDIUM DIFFICILE INFECTION
     Dosage: 750 MG
     Route: 048
     Dates: start: 202001, end: 20200123

REACTIONS (1)
  - Pancreatitis acute [Recovering/Resolving]

NARRATIVE: CASE EVENT DATE: 20200120
